FAERS Safety Report 6858713-8 (Version None)
Quarter: 2010Q3

REPORT INFORMATION
  Report Type: 
  Country: None (occurrence: None)
  Receive Date: 20100719
  Receipt Date: 20080210
  Transmission Date: 20110219
  Serious: No
  Sender: FDA-Public Use
  Company Number: US-PFIZER INC-2008015583

PATIENT
  Age: 44 Year
  Sex: Female
  Weight: 56.818 kg

DRUGS (8)
  1. CHANTIX [Suspect]
     Indication: SMOKING CESSATION THERAPY
     Route: 048
     Dates: start: 20080201
  2. MONTELUKAST SODIUM [Concomitant]
  3. CLONAZEPAM [Concomitant]
  4. CALTRATE + D [Concomitant]
  5. ZANTAC [Concomitant]
  6. BENADRYL [Concomitant]
  7. PREMPRO [Concomitant]
  8. ALL OTHER THERAPEUTIC PRODUCTS [Concomitant]

REACTIONS (4)
  - ASTHENIA [None]
  - DIZZINESS [None]
  - HEADACHE [None]
  - NAUSEA [None]
